FAERS Safety Report 21406802 (Version 2)
Quarter: 2022Q4

REPORT INFORMATION
  Report Type: Report from Study
  Country: US (occurrence: US)
  Receive Date: 20221004
  Receipt Date: 20221027
  Transmission Date: 20230113
  Serious: No
  Sender: FDA-Public Use
  Company Number: US-ABBVIE-4133746

PATIENT
  Sex: Female

DRUGS (1)
  1. LUPRON DEPOT-PED [Suspect]
     Active Substance: LEUPROLIDE ACETATE
     Indication: Cerebral hypoperfusion
     Route: 065
     Dates: start: 20191212

REACTIONS (5)
  - Pain in extremity [Unknown]
  - Nasopharyngitis [Unknown]
  - Injection site erythema [Unknown]
  - Pyrexia [Unknown]
  - Injection site swelling [Unknown]
